FAERS Safety Report 6500771-4 (Version None)
Quarter: 2009Q4

REPORT INFORMATION
  Report Type: 
  Country: None (occurrence: None)
  Receive Date: 20091216
  Receipt Date: 20090216
  Transmission Date: 20100525
  Serious: No
  Sender: FDA-Public Use
  Company Number: A0768848A

PATIENT
  Age: 68 Year
  Sex: Female

DRUGS (1)
  1. NICOTINE POLACRILEX [Suspect]
     Indication: SMOKING CESSATION THERAPY

REACTIONS (8)
  - ASTHENIA [None]
  - DIARRHOEA [None]
  - DIZZINESS [None]
  - EAR DISCOMFORT [None]
  - FACIAL PAIN [None]
  - HEADACHE [None]
  - HYPOAESTHESIA [None]
  - NAUSEA [None]
